FAERS Safety Report 6223600-5 (Version None)
Quarter: 2009Q2

REPORT INFORMATION
  Report Type: 
  Country: None (occurrence: None)
  Receive Date: 20090610
  Receipt Date: 20090526
  Transmission Date: 20091009
  Serious: Yes (Other)
  Sender: FDA-Public Use
  Company Number: 09-058

PATIENT
  Age: 29 Year
  Sex: Male

DRUGS (1)
  1. CEFEPIME [Suspect]
     Indication: BRAIN ABSCESS
     Dosage: 2 G X 2.

REACTIONS (3)
  - BLOOD CREATININE INCREASED [None]
  - BLOOD UREA INCREASED [None]
  - STATUS EPILEPTICUS [None]
